FAERS Safety Report 23302765 (Version 1)
Quarter: 2023Q4

REPORT INFORMATION
  Report Type: Spontaneous
  Country: ES (occurrence: ES)
  Receive Date: 20231215
  Receipt Date: 20231215
  Transmission Date: 20240110
  Serious: Yes (Hospitalization, Other)
  Sender: FDA-Public Use
  Company Number: ES-SA-2023SA370628

PATIENT
  Age: 62 Year
  Sex: Male
  Weight: 72 kg

DRUGS (6)
  1. DOCETAXEL [Suspect]
     Active Substance: DOCETAXEL\DOCETAXEL ANHYDROUS
     Indication: Non-small cell lung cancer
     Dosage: 60 MG/M2, EVERY 3 WEEKS
     Route: 042
     Dates: start: 20230302, end: 20230426
  2. METRONIDAZOLE [Concomitant]
     Active Substance: METRONIDAZOLE
     Indication: Abdominal pain
     Dosage: UNK
     Dates: start: 202305, end: 202305
  3. METAMIZOLE SODIUM [Concomitant]
     Active Substance: METAMIZOLE SODIUM
     Indication: Pain
     Dosage: 575 MG, AS NEEDED
     Dates: start: 20230301
  4. LEVOTHYROXINE SODIUM [Concomitant]
     Active Substance: LEVOTHYROXINE SODIUM
     Indication: Hypothyroidism
     Dosage: 100 UG, DAILY
  5. OMEPRAZOLE [Concomitant]
     Active Substance: OMEPRAZOLE
     Dosage: UNK
  6. SIMVASTATIN [Concomitant]
     Active Substance: SIMVASTATIN
     Indication: Dyslipidaemia
     Dosage: 20 MG, 1X/DAY
     Dates: start: 2021

REACTIONS (4)
  - Diverticulitis [Recovered/Resolved]
  - Small intestinal perforation [Recovered/Resolved]
  - Small intestinal obstruction [Unknown]
  - Escherichia test positive [Unknown]

NARRATIVE: CASE EVENT DATE: 20230501
